FAERS Safety Report 8786213 (Version 2)
Quarter: 2012Q4

REPORT INFORMATION
  Report Type: 
  Country: DE (occurrence: DE)
  Receive Date: 20120914
  Receipt Date: 20121015
  Transmission Date: 20130627
  Serious: Yes (Other)
  Sender: FDA-Public Use
  Company Number: DE-PFIZER INC-2012170856

PATIENT
  Age: 57 Year
  Sex: Female
  Weight: 125 kg

DRUGS (4)
  1. LYRICA [Suspect]
     Indication: NEURALGIA
     Dosage: 75 mg, 1x/day
     Route: 048
     Dates: start: 20120613, end: 201206
  2. LYRICA [Suspect]
     Indication: PAIN
     Dosage: 75 mg, 2x/day
     Route: 048
     Dates: start: 201206, end: 20120702
  3. LYRICA [Suspect]
     Indication: FIBROMYALGIA
     Dosage: 150 mg, 2x/day
     Route: 048
     Dates: start: 20120703, end: 20120706
  4. LYRICA [Suspect]
     Indication: DYSAESTHESIA

REACTIONS (13)
  - Cataract [Unknown]
  - Visual impairment [Not Recovered/Not Resolved]
  - Altered visual depth perception [Unknown]
  - Visual acuity reduced [Not Recovered/Not Resolved]
  - Diplopia [Not Recovered/Not Resolved]
  - Vision blurred [Not Recovered/Not Resolved]
  - Tongue dry [Unknown]
  - Cough [Not Recovered/Not Resolved]
  - Balance disorder [Unknown]
  - Dry mouth [Not Recovered/Not Resolved]
  - Dry eye [Unknown]
  - Dry throat [Unknown]
  - Nausea [Unknown]
